FAERS Safety Report 5189378-1 (Version None)
Quarter: 2006Q4

REPORT INFORMATION
  Report Type: 
  Country: None (occurrence: None)
  Receive Date: 20061221
  Receipt Date: 20061215
  Transmission Date: 20070319
  Serious: Yes (Other)
  Sender: FDA-Public Use
  Company Number: GB-MERCK-0612USA03087

PATIENT
  Age: 57 Year
  Sex: Female
  Weight: 67 kg

DRUGS (1)
  1. PRINIVIL [Suspect]
     Route: 048
     Dates: start: 20040311, end: 20061019

REACTIONS (2)
  - ANGIONEUROTIC OEDEMA [None]
  - LOCAL REACTION [None]
